FAERS Safety Report 6907139-7 (Version None)
Quarter: 2010Q3

REPORT INFORMATION
  Report Type: 
  Country: None (occurrence: None)
  Receive Date: 20100804
  Receipt Date: 20090225
  Transmission Date: 20110219
  Serious: No
  Sender: FDA-Public Use
  Company Number: US-PFIZER INC-2009155684

PATIENT
  Age: 60 Year
  Sex: Female
  Weight: 54.431 kg

DRUGS (3)
  1. CLINDAMYCIN PHOSPHATE [Suspect]
     Indication: VAGINAL INFECTION
     Dates: end: 20090107
  2. ALENDRONATE SODIUM [Concomitant]
     Dosage: UNK
  3. AMOXICILLIN [Concomitant]
     Dosage: UNK

REACTIONS (1)
  - APPLICATION SITE BLEEDING [None]
